FAERS Safety Report 19427304 (Version 1)
Quarter: 2021Q2

REPORT INFORMATION
  Report Type: Spontaneous
  Country: US (occurrence: US)
  Receive Date: 20210616
  Receipt Date: 20210616
  Transmission Date: 20210717
  Serious: No
  Sender: FDA-Public Use
  Company Number: None

PATIENT
  Age: 53 Year
  Sex: Male
  Weight: 59.6 kg

DRUGS (3)
  1. DIPHENHYDRAMINE 25 MG [Concomitant]
     Dates: start: 20210614, end: 20210614
  2. INFLIXIMAB?ABDA [Suspect]
     Active Substance: INFLIXIMAB-ABDA
     Indication: CROHN^S DISEASE
     Dosage: ?          OTHER FREQUENCY:ONE TIME INFUSION;?
     Route: 041
     Dates: start: 20210614, end: 20210614
  3. HYDROCORTISONE 100 MG [Concomitant]
     Dates: start: 20210614, end: 20210614

REACTIONS (3)
  - Infusion related reaction [None]
  - Urticaria [None]
  - Pruritus [None]

NARRATIVE: CASE EVENT DATE: 20210614
